FAERS Safety Report 5132899-8 (Version None)
Quarter: 2006Q4

REPORT INFORMATION
  Report Type: 
  Country: None (occurrence: None)
  Receive Date: 20061023
  Receipt Date: 20061004
  Transmission Date: 20070319
  Serious: Yes (Death, Disabling)
  Sender: FDA-Public Use
  Company Number: IS-AVENTIS-200615221EU

PATIENT
  Age: 80 Year
  Sex: Female

DRUGS (2)
  1. LASIX [Suspect]
     Indication: DRUG USE FOR UNKNOWN INDICATION
     Dosage: DOSE: UNKNOWN DOSAGE
  2. RISPERDAL [Concomitant]
     Route: 048

REACTIONS (4)
  - BEDRIDDEN [None]
  - CONDITION AGGRAVATED [None]
  - DEATH [None]
  - MALAISE [None]
